FAERS Safety Report 15487592 (Version 1)
Quarter: 2018Q4

REPORT INFORMATION
  Report Type: Spontaneous
  Country: GB (occurrence: GB)
  Receive Date: 20181011
  Receipt Date: 20181011
  Transmission Date: 20190205
  Serious: Yes (Other)
  Sender: FDA-Public Use
  Company Number: GB-TEVA-2018-GB-963297

PATIENT
  Age: 91 Year
  Sex: Female

DRUGS (16)
  1. ZOPICLONE [Concomitant]
     Active Substance: ZOPICLONE
  2. HYOSCINE BUTYLBROMIDE [Concomitant]
     Active Substance: BUTYLSCOPOLAMINE
  3. DOXAZOSIN [Suspect]
     Active Substance: DOXAZOSIN\DOXAZOSIN MESYLATE
     Dosage: 2 MILLIGRAM DAILY;
  4. DIAZEPAM. [Concomitant]
     Active Substance: DIAZEPAM
  5. MEBEVERINE [Concomitant]
     Active Substance: MEBEVERINE
  6. AMITRIPTYLINE [Concomitant]
     Active Substance: AMITRIPTYLINE
  7. MIRTAZAPINE. [Concomitant]
     Active Substance: MIRTAZAPINE
  8. ADCAL-D3 [Concomitant]
     Active Substance: CALCIUM CARBONATE\CHOLECALCIFEROL
  9. FUROSEMIDE. [Concomitant]
     Active Substance: FUROSEMIDE
  10. APIXABAN [Concomitant]
     Active Substance: APIXABAN
  11. ZOMORPH [Concomitant]
     Active Substance: MORPHINE SULFATE
  12. ALENDRONIC ACID [Concomitant]
     Active Substance: ALENDRONIC ACID
  13. AMLODIPINE MALEATE [Concomitant]
     Active Substance: AMLODIPINE MALEATE
  14. PARACETAMOL [Concomitant]
     Active Substance: ACETAMINOPHEN
  15. LANSOPRAZOLE. [Concomitant]
     Active Substance: LANSOPRAZOLE
  16. PEPPERMINT OIL [Concomitant]
     Active Substance: PEPPERMINT OIL

REACTIONS (1)
  - Acute kidney injury [Recovered/Resolved with Sequelae]
